FAERS Safety Report 14744529 (Version 1)
Quarter: 2018Q2

REPORT INFORMATION
  Report Type: Report from Study
  Country: GB (occurrence: GB)
  Receive Date: 20180411
  Receipt Date: 20180411
  Transmission Date: 20180711
  Serious: Yes (Hospitalization)
  Sender: FDA-Public Use
  Company Number: GB-ROCHE-2102923

PATIENT
  Age: 82 Year
  Sex: Male

DRUGS (9)
  1. OBINUTUZUMAB. [Suspect]
     Active Substance: OBINUTUZUMAB
     Indication: CHRONIC LYMPHOCYTIC LEUKAEMIA
     Dosage: CYCLE 1: 100 MG, D1; 900 MG, D1(2); 1000 MG, D8+15, Q28D; CYCLES 2-6: 1000 MG, D1, Q28D (AS PER PROT
     Route: 042
     Dates: start: 20170622
  2. IBRUTINIB [Suspect]
     Active Substance: IBRUTINIB
     Indication: CHRONIC LYMPHOCYTIC LEUKAEMIA
     Dosage: CYCLES 1-12: 420 MG, D1-28; CYCLES 13-36: 420 MG, D1-28 (AS PER PROTOCOL)
     Route: 048
     Dates: start: 20170622
  3. METRONIDAZOLE. [Concomitant]
     Active Substance: METRONIDAZOLE
     Route: 065
     Dates: start: 20171116
  4. DIGOXIN. [Concomitant]
     Active Substance: DIGOXIN
     Dosage: 2 TABLETS
     Route: 065
     Dates: start: 20160304
  5. ELIQUIS [Concomitant]
     Active Substance: APIXABAN
     Route: 065
     Dates: start: 20170922
  6. VENETOCLAX. [Suspect]
     Active Substance: VENETOCLAX
     Indication: CHRONIC LYMPHOCYTIC LEUKAEMIA
     Dosage: CYCLE 1: 20 MG (2 TABL. AT 10 MG), D22-28, Q28D (AS PER PROTOCOL)?CYCLE 2: 50 MG (1 TABL. AT 50 MG),
     Route: 048
     Dates: start: 20170713, end: 20180329
  7. IMBRUVICA [Concomitant]
     Active Substance: IBRUTINIB
     Route: 065
     Dates: start: 20170629
  8. SULFAMETHOXAZOLE/TRIMETHOPRIM [Concomitant]
     Active Substance: SULFAMETHOXAZOLE\TRIMETHOPRIM
     Dosage: 400MG/80MG, ONE TABLET
     Route: 065
     Dates: start: 20170622
  9. ACICLOVIR [Concomitant]
     Active Substance: ACYCLOVIR
     Dosage: ONE TABLET
     Route: 065
     Dates: start: 20170703

REACTIONS (1)
  - Bronchitis [Unknown]

NARRATIVE: CASE EVENT DATE: 20180330
